FAERS Safety Report 12992331 (Version 1)
Quarter: 2016Q4

REPORT INFORMATION
  Report Type: Spontaneous
  Country: US (occurrence: US)
  Receive Date: 20161202
  Receipt Date: 20161202
  Transmission Date: 20170207
  Serious: No
  Sender: FDA-Public Use
  Company Number: US-AUROBINDO-AUR-APL-2015-09715

PATIENT
  Sex: Female
  Weight: 68.2 kg

DRUGS (1)
  1. FLUCONAZOLE TABLETS 150 MG [Suspect]
     Active Substance: FLUCONAZOLE
     Indication: ONYCHOMYCOSIS
     Dosage: UNK
     Route: 048

REACTIONS (1)
  - Tinnitus [Unknown]
